FAERS Safety Report 25469042 (Version 1)
Quarter: 2025Q2

REPORT INFORMATION
  Report Type: Spontaneous
  Country: DE (occurrence: DE)
  Receive Date: 20250623
  Receipt Date: 20250623
  Transmission Date: 20250717
  Serious: No
  Sender: TRAVERE THERAPEUTICS
  Company Number: DE-BEH-2025204854

PATIENT
  Age: 23 Year
  Sex: Male

DRUGS (6)
  1. FILSPARI [Suspect]
     Active Substance: SPARSENTAN
     Route: 065
  2. FILSPARI [Suspect]
     Active Substance: SPARSENTAN
     Route: 065
     Dates: start: 20250301
  3. NIACIN [Suspect]
     Active Substance: NIACIN
     Route: 065
  4. DAPAGLIFLOZIN [Concomitant]
     Active Substance: DAPAGLIFLOZIN
  5. ATORVASTATIN [Concomitant]
     Active Substance: ATORVASTATIN
  6. CHOLECALCIFEROL [Concomitant]
     Active Substance: CHOLECALCIFEROL

REACTIONS (3)
  - Cold urticaria [Unknown]
  - Erythema [Recovered/Resolved]
  - Blister [Recovered/Resolved]
